FAERS Safety Report 4424217-5 (Version None)
Quarter: 2004Q3

REPORT INFORMATION
  Report Type: 
  Country: None (occurrence: None)
  Receive Date: 20040809
  Receipt Date: 20040802
  Transmission Date: 20050211
  Serious: Yes (Other)
  Sender: FDA-Public Use
  Company Number: 2004-07-1141

PATIENT
  Age: 73 Year
  Sex: Male

DRUGS (1)
  1. INTRON A [Suspect]
     Indication: CHRONIC MYELOID LEUKAEMIA
     Dosage: SUBCUTANEOUS
     Route: 058
     Dates: start: 20000901

REACTIONS (7)
  - INJECTION SITE ERYTHEMA [None]
  - INJECTION SITE INDURATION [None]
  - INJECTION SITE NECROSIS [None]
  - INJECTION SITE PAIN [None]
  - INJECTION SITE ULCER [None]
  - LOCALISED OEDEMA [None]
  - LYMPHOCYTIC INFILTRATION [None]
